FAERS Safety Report 13726333 (Version 2)
Quarter: 2018Q1

REPORT INFORMATION
  Report Type: Spontaneous
  Country: IN (occurrence: IN)
  Receive Date: 20170706
  Receipt Date: 20180131
  Transmission Date: 20180508
  Serious: Yes (Other)
  Sender: FDA-Public Use
  Company Number: IN-MYLANLABS-2017M1041284

PATIENT
  Age: 52 Year
  Sex: Female

DRUGS (1)
  1. CLOZAPINE. [Suspect]
     Active Substance: CLOZAPINE
     Indication: SCHIZOPHRENIA
     Dosage: 150 MG, QD

REACTIONS (3)
  - Body mass index increased [Unknown]
  - Blood glucose increased [Recovering/Resolving]
  - Weight increased [Not Recovered/Not Resolved]
